FAERS Safety Report 20103005 (Version 1)
Quarter: 2021Q4

REPORT INFORMATION
  Report Type: Report from Study
  Country: GB (occurrence: GB)
  Receive Date: 20211123
  Receipt Date: 20211123
  Transmission Date: 20220303
  Serious: Yes (Other)
  Sender: FDA-Public Use
  Company Number: GB-NOVARTISPH-NVSC2021GB232659

PATIENT
  Sex: Female

DRUGS (2)
  1. HYRIMOZ [Suspect]
     Active Substance: ADALIMUMAB-ADAZ
     Indication: Ankylosing spondylitis
     Dosage: 40 MG, Q2W (ROUTE: AS DIRECTED)
     Route: 065
     Dates: start: 20200309
  2. METHOTREXATE [Suspect]
     Active Substance: METHOTREXATE
     Indication: Product used for unknown indication
     Dosage: UNK
     Route: 065

REACTIONS (9)
  - Ankylosing spondylitis [Unknown]
  - Musculoskeletal discomfort [Unknown]
  - Back pain [Unknown]
  - Hypokinesia [Unknown]
  - Fluid retention [Unknown]
  - Feeling abnormal [Unknown]
  - Arthralgia [Unknown]
  - Pain [Unknown]
  - Product dose omission issue [Unknown]
